FAERS Safety Report 24926904 (Version 1)
Quarter: 2025Q1

REPORT INFORMATION
  Report Type: Spontaneous
  Country: GB (occurrence: GB)
  Receive Date: 20250205
  Receipt Date: 20250205
  Transmission Date: 20250409
  Serious: Yes (Other)
  Sender: TEVA
  Company Number: GB-MHRA-EMIS-3754-dcbd4c6a-564b-4b00-b77e-88e6107b4fcc

PATIENT
  Age: 73 Year
  Sex: Female
  Weight: 107 kg

DRUGS (3)
  1. DOXAZOSIN [Suspect]
     Active Substance: DOXAZOSIN MESYLATE
     Indication: Product used for unknown indication
     Dosage: DAILY DOSE: 1 DOSAGE FORM
     Route: 065
     Dates: start: 20241205, end: 20241224
  2. DOXAZOSIN [Concomitant]
     Active Substance: DOXAZOSIN MESYLATE
     Indication: Product used for unknown indication
     Dates: start: 20241216, end: 20250128
  3. EZETIMIBE [Concomitant]
     Active Substance: EZETIMIBE
     Dosage: DAILY DOSE: 1 DOSAGE FORM
     Dates: start: 20241108

REACTIONS (1)
  - Depressed level of consciousness [Unknown]
